FAERS Safety Report 21146561 (Version 1)
Quarter: 2022Q3

REPORT INFORMATION
  Report Type: Spontaneous
  Country: US (occurrence: US)
  Receive Date: 20220729
  Receipt Date: 20220729
  Transmission Date: 20221026
  Serious: No
  Sender: FDA-Public Use
  Company Number: US-drreddys-SPO/USA/22/0152675

PATIENT
  Age: 25 Year
  Sex: Female

DRUGS (1)
  1. ZENATANE [Suspect]
     Active Substance: ISOTRETINOIN
     Indication: Acne
     Dosage: RMA ISSUE DATE: 25 MARCH 2022 02:19:49 PM, 19 APRIL 2022 06:31:37 PM AND 20 JUNE 2022 06:22:19 PM

REACTIONS (1)
  - Treatment noncompliance [Unknown]
